FAERS Safety Report 20982225 (Version 2)
Quarter: 2022Q2

REPORT INFORMATION
  Report Type: Spontaneous
  Country: US (occurrence: US)
  Receive Date: 20220620
  Receipt Date: 20220622
  Transmission Date: 20220721
  Serious: No
  Sender: FDA-Public Use
  Company Number: US-PFIZER INC-PV202200005456

PATIENT
  Age: 42 Year
  Sex: Female
  Weight: 70.31 kg

DRUGS (1)
  1. ELETRIPTAN HYDROBROMIDE [Suspect]
     Active Substance: ELETRIPTAN HYDROBROMIDE
     Dosage: UNK

REACTIONS (1)
  - Abdominal pain upper [Unknown]
